FAERS Safety Report 7396938-6 (Version None)
Quarter: 2011Q2

REPORT INFORMATION
  Report Type: 
  Country: None (occurrence: None)
  Receive Date: 20110406
  Receipt Date: 20110331
  Transmission Date: 20111010
  Serious: No
  Sender: FDA-Public Use
  Company Number: US-BAYER-2011-029138

PATIENT
  Sex: Male
  Weight: 81.633 kg

DRUGS (7)
  1. AMLODIPINE BESYLATE [Concomitant]
  2. ANTIHYPERTENSIVES [Concomitant]
  3. SIMVASTATIN [Concomitant]
  4. ALLOPURINOL [Concomitant]
  5. LISINOPRIL [Concomitant]
  6. ATENOLOL [Concomitant]
  7. ALEVE (CAPLET) [Suspect]
     Indication: ARTHRITIS
     Dosage: BOTTLE COUNT 80S
     Route: 048
     Dates: start: 20110331

REACTIONS (1)
  - NO ADVERSE EVENT [None]
